FAERS Safety Report 25179837 (Version 2)
Quarter: 2025Q3

REPORT INFORMATION
  Report Type: Spontaneous
  Country: EU (occurrence: EU)
  Receive Date: 20250409
  Receipt Date: 20250810
  Transmission Date: 20251021
  Serious: Yes (Other)
  Sender: ALEXION PHARMACEUTICALS
  Company Number: None

PATIENT
  Age: 68 Year
  Sex: Male
  Weight: 71 kg

DRUGS (1)
  1. DAPAGLIFLOZIN [Suspect]
     Active Substance: DAPAGLIFLOZIN
     Indication: Type 2 diabetes mellitus
     Dosage: 1-0-0; 10 MG
     Dates: start: 20220514, end: 20250228

REACTIONS (3)
  - Bladder cancer [Recovered/Resolved with Sequelae]
  - Renal failure [Unknown]
  - Urinary tract infection [Unknown]
